FAERS Safety Report 11404622 (Version 3)
Quarter: 2016Q1

REPORT INFORMATION
  Report Type: Report from Study
  Country: JP (occurrence: JP)
  Receive Date: 20150821
  Receipt Date: 20160108
  Transmission Date: 20160525
  Serious: Yes (Life-Threatening, Hospitalization)
  Sender: FDA-Public Use
  Company Number: JP-SA-2015SA125921

PATIENT
  Age: 58 Year
  Sex: Female
  Weight: 66.7 kg

DRUGS (8)
  1. THYMOGLOBULINE [Suspect]
     Active Substance: LAPINE T-LYMPHOCYTE IMMUNE GLOBULIN
     Indication: APLASTIC ANAEMIA
     Route: 042
     Dates: start: 20130731, end: 20130804
  2. CICLOSPORIN [Concomitant]
     Active Substance: CYCLOSPORINE
     Indication: APLASTIC ANAEMIA
     Dates: start: 20060227
  3. MUCOSTA [Concomitant]
     Active Substance: REBAMIPIDE
     Indication: PROPHYLAXIS
     Dates: start: 20130731
  4. GRAN [Concomitant]
     Active Substance: FILGRASTIM
     Indication: APLASTIC ANAEMIA
     Dates: start: 20130803, end: 20131027
  5. MAXIPIME [Concomitant]
     Active Substance: CEFEPIME HYDROCHLORIDE
     Indication: FEBRILE NEUTROPENIA
     Dates: start: 20130823, end: 20130903
  6. NEORAL [Concomitant]
     Active Substance: CYCLOSPORINE
     Indication: APLASTIC ANAEMIA
     Dates: start: 20130731
  7. ITRIZOLE [Concomitant]
     Active Substance: ITRACONAZOLE
     Indication: INFECTION PROPHYLAXIS
     Dates: start: 20130731, end: 20130918
  8. BAKTAR [Concomitant]
     Active Substance: SULFAMETHOXAZOLE\TRIMETHOPRIM
     Indication: INFECTION PROPHYLAXIS
     Dates: start: 20130802

REACTIONS (3)
  - Brain oedema [Recovered/Resolved]
  - Candida pneumonia [Recovered/Resolved]
  - Brain abscess [Recovered/Resolved]

NARRATIVE: CASE EVENT DATE: 20130906
